FAERS Safety Report 17063345 (Version 1)
Quarter: 2019Q4

REPORT INFORMATION
  Report Type: Report from Study
  Country: US (occurrence: US)
  Receive Date: 20191122
  Receipt Date: 20191122
  Transmission Date: 20200122
  Serious: Yes (Death, Other)
  Sender: FDA-Public Use
  Company Number: US-REGENERON PHARMACEUTICALS, INC.-2019-66365

PATIENT

DRUGS (5)
  1. EYLEA [Suspect]
     Active Substance: AFLIBERCEPT
     Indication: NEOVASCULAR AGE-RELATED MACULAR DEGENERATION
     Dosage: UNK
     Dates: start: 20161102, end: 20180129
  2. EYLEA [Suspect]
     Active Substance: AFLIBERCEPT
     Indication: CHOROIDAL NEOVASCULARISATION
  3. EYLEA [Suspect]
     Active Substance: AFLIBERCEPT
     Indication: HYPERMETROPIA
  4. EYLEA [Suspect]
     Active Substance: AFLIBERCEPT
     Indication: PRESBYOPIA
  5. EYLEA [Suspect]
     Active Substance: AFLIBERCEPT
     Indication: CATARACT

REACTIONS (2)
  - Death [Fatal]
  - Off label use [Unknown]
